FAERS Safety Report 9123895 (Version 2)
Quarter: 2013Q2

REPORT INFORMATION
  Report Type: Spontaneous
  Country: US (occurrence: US)
  Receive Date: 20130116
  Receipt Date: 20130419
  Transmission Date: 20140414
  Serious: No
  Sender: FDA-Public Use
  Company Number: US-B.I. PHARMACEUTICALS,INC./RIDGEFIELD-2013-BI-00019BP

PATIENT
  Age: 70 Year
  Sex: Male
  Weight: 95.25 kg

DRUGS (3)
  1. SPIRIVA [Suspect]
     Indication: CHRONIC OBSTRUCTIVE PULMONARY DISEASE
     Dosage: 18 MCG
     Route: 055
     Dates: start: 20050428
  2. SPIRIVA [Suspect]
     Indication: BRONCHITIS CHRONIC
  3. PROAIR HFA [Suspect]
     Indication: BRONCHITIS CHRONIC
     Route: 055
     Dates: start: 20070514

REACTIONS (4)
  - Dyspnoea [Not Recovered/Not Resolved]
  - Fatigue [Unknown]
  - Asthenia [Unknown]
  - Dyspnoea [Unknown]
